FAERS Safety Report 19018728 (Version 3)
Quarter: 2021Q3

REPORT INFORMATION
  Report Type: Report from Study
  Country: CA (occurrence: CA)
  Receive Date: 20210317
  Receipt Date: 20210701
  Transmission Date: 20211014
  Serious: Yes (Other)
  Sender: FDA-Public Use
  Company Number: CA-JNJFOC-20210327904

PATIENT
  Age: 13 Year
  Sex: Male
  Weight: 32.6 kg

DRUGS (1)
  1. REMICADE [Suspect]
     Active Substance: INFLIXIMAB
     Indication: CROHN^S DISEASE
     Dosage: ON 25?JUN?2021, THE PATIENT RECEIVED 57TH 300 MG INFLIXIMAB INFUSION AND PARTIAL HARVEY?BRADSHAW WAS
     Route: 042
     Dates: start: 20160715

REACTIONS (1)
  - Circumcision [Recovered/Resolved]

NARRATIVE: CASE EVENT DATE: 20210212
